FAERS Safety Report 9231965 (Version 2)
Quarter: 2013Q2

REPORT INFORMATION
  Report Type: Other
  Country: GB (occurrence: GB)
  Receive Date: 20130415
  Receipt Date: 20130513
  Transmission Date: 20140414
  Serious: Yes (Other)
  Sender: FDA-Public Use
  Company Number: GB-WATSON-2013-06173

PATIENT
  Age: 54 Year
  Sex: Female

DRUGS (12)
  1. SERTRALINE HYDROCHLORIDE (UNKNOWN) [Suspect]
     Indication: ANXIETY
     Dosage: 50 MG, DAILY  DOSAGE FORM: UNSPECIFIED
     Route: 065
     Dates: start: 20120315, end: 20120413
  2. CITALOPRAM HYDROBROMIDE (UNKNOWN) [Suspect]
     Indication: PRODUCT USED FOR UNKNOWN INDICATION
     Dosage: DOSAGE FORM: UNSPECIFIED
     Route: 065
  3. EVOREL SEQUI [Suspect]
     Indication: MENOPAUSAL SYMPTOMS
     Dosage: UNKNOWN
     Route: 062
     Dates: start: 201202, end: 201204
  4. EVOREL SEQUI [Suspect]
     Indication: HORMONE REPLACEMENT THERAPY
     Dosage: UNKNOWN
     Route: 062
     Dates: start: 20120321, end: 20120716
  5. EVOREL SEQUI [Suspect]
     Dosage: UNKNOWN
     Route: 062
     Dates: start: 2012, end: 20120820
  6. FEMOSTON [Suspect]
     Indication: HORMONE REPLACEMENT THERAPY
     Dosage: 1MG DOSAGE FORM: TABLETS
     Route: 065
     Dates: start: 2012, end: 20120820
  7. KLIOFEM [Suspect]
     Indication: MENOPAUSE
     Dosage: ESTRADIOL HEMIHYDRATE 2 MG, NORETHISTERONE ACETATE 1
     Route: 065
     Dates: start: 201204, end: 20120515
  8. KLIOFEM [Suspect]
     Indication: HORMONE REPLACEMENT THERAPY
  9. ZOPICLONE [Concomitant]
     Indication: INSOMNIA
     Dosage: 3.75- 7.5 MG QHS
     Route: 065
     Dates: start: 20120330
  10. MIRTAZAPINE [Concomitant]
     Indication: ANXIETY
     Dosage: 15 MG, DAILY
     Route: 065
     Dates: start: 20120731, end: 20121008
  11. MIRTAZAPINE [Concomitant]
     Indication: DEPRESSION
     Dosage: 30 MG, DAILY
     Route: 065
  12. AMITRIPTYLINE [Concomitant]
     Indication: PAIN
     Dosage: 10-50 MG QHS
     Route: 065
     Dates: start: 20120628, end: 20121010

REACTIONS (14)
  - Nerve injury [Recovering/Resolving]
  - Neuralgia [Recovering/Resolving]
  - Headache [Recovering/Resolving]
  - Toothache [Not Recovered/Not Resolved]
  - Oral pain [Not Recovered/Not Resolved]
  - Anxiety [Recovering/Resolving]
  - Vomiting [Recovering/Resolving]
  - Hypoaesthesia oral [Recovering/Resolving]
  - Hearing impaired [Recovering/Resolving]
  - Otorrhoea [Recovering/Resolving]
  - Pain [Recovering/Resolving]
  - Hypersensitivity [Recovering/Resolving]
  - Pruritus [Not Recovered/Not Resolved]
  - Pain of skin [Not Recovered/Not Resolved]
